FAERS Safety Report 13981179 (Version 1)
Quarter: 2017Q3

REPORT INFORMATION
  Report Type: Spontaneous
  Country: US (occurrence: US)
  Receive Date: 20170915
  Receipt Date: 20170915
  Transmission Date: 20171128
  Serious: Yes (Hospitalization, Disabling)
  Sender: FDA-Public Use
  Company Number: None

PATIENT
  Age: 62 Year
  Sex: Female
  Weight: 102.2 kg

DRUGS (4)
  1. ROSUVASTATIN. [Concomitant]
     Active Substance: ROSUVASTATIN
  2. NAPROXEN. [Concomitant]
     Active Substance: NAPROXEN
  3. VISIPAQUE [Suspect]
     Active Substance: IODIXANOL
     Indication: ECHOCARDIOGRAM
     Dosage: ?          OTHER FREQUENCY:ONCE; 70 ML INTRA-ARTERIAL?
     Route: 013
     Dates: start: 20170808
  4. IBUPROFEN. [Concomitant]
     Active Substance: IBUPROFEN

REACTIONS (2)
  - Acute kidney injury [None]
  - Rhabdomyolysis [None]

NARRATIVE: CASE EVENT DATE: 20170808
